FAERS Safety Report 17650034 (Version 1)
Quarter: 2020Q2

REPORT INFORMATION
  Report Type: Report from Study
  Country: DE (occurrence: DE)
  Receive Date: 20200409
  Receipt Date: 20200409
  Transmission Date: 20200713
  Serious: Yes (Death, Hospitalization)
  Sender: FDA-Public Use
  Company Number: DE-BAXTER-2020BAX007574

PATIENT
  Age: 47 Year
  Sex: Female
  Weight: 61 kg

DRUGS (12)
  1. DOXIL [Suspect]
     Active Substance: DOXORUBICIN HYDROCHLORIDE
     Dosage: 3RD CYCLE(S)
     Route: 042
     Dates: start: 20040826, end: 20040826
  2. CARBOPLATIN. [Suspect]
     Active Substance: CARBOPLATIN
     Dosage: 1ST CYCLE(S)
     Route: 042
     Dates: start: 20040701, end: 20040701
  3. DOXIL [Suspect]
     Active Substance: DOXORUBICIN HYDROCHLORIDE
     Dosage: 4TH CYCLE(S)
     Route: 042
  4. CARBOPLATIN. [Suspect]
     Active Substance: CARBOPLATIN
     Dosage: 5TH CYCLE(S)
     Route: 042
     Dates: start: 20041021, end: 20041021
  5. CARBOPLATIN. [Suspect]
     Active Substance: CARBOPLATIN
     Dosage: 2ND CYCLE(S)
     Route: 042
     Dates: start: 20040729, end: 20040729
  6. DOXIL [Suspect]
     Active Substance: DOXORUBICIN HYDROCHLORIDE
     Indication: CERVIX CARCINOMA
     Dosage: 5TH CYCLE(S)
     Route: 042
     Dates: start: 20041021, end: 20041021
  7. DOXIL [Suspect]
     Active Substance: DOXORUBICIN HYDROCHLORIDE
     Dosage: 1ST CYCLE(S)
     Route: 042
     Dates: start: 20040701, end: 20040701
  8. DOXIL [Suspect]
     Active Substance: DOXORUBICIN HYDROCHLORIDE
     Dosage: 2ND CYCLE(S)
     Route: 042
     Dates: start: 20040729, end: 20040729
  9. CARBOPLATIN. [Suspect]
     Active Substance: CARBOPLATIN
     Dosage: 4TH CYCLE(S)
     Route: 042
  10. CARBOPLATIN. [Suspect]
     Active Substance: CARBOPLATIN
     Indication: CERVIX CARCINOMA
     Dosage: 5 CYCLE(S)
     Route: 042
     Dates: start: 20040701, end: 20041021
  11. DOXIL [Suspect]
     Active Substance: DOXORUBICIN HYDROCHLORIDE
     Dosage: 67.6-UNK MG* 5 CYCLE(S)
     Route: 042
     Dates: start: 20040701, end: 20041021
  12. CARBOPLATIN. [Suspect]
     Active Substance: CARBOPLATIN
     Dosage: 3RD CYCLE(S)
     Route: 042
     Dates: start: 20040826, end: 20040826

REACTIONS (4)
  - Subileus [Unknown]
  - Disease progression [Fatal]
  - Somnolence [Unknown]
  - Confusional state [Unknown]

NARRATIVE: CASE EVENT DATE: 20040828
